FAERS Safety Report 14962470 (Version 2)
Quarter: 2018Q3

REPORT INFORMATION
  Report Type: Spontaneous
  Country: US (occurrence: US)
  Receive Date: 20180601
  Receipt Date: 20180903
  Transmission Date: 20181010
  Serious: Yes (Other)
  Sender: FDA-Public Use
  Company Number: US-PFIZER INC-2018216677

PATIENT
  Age: 67 Year
  Sex: Female
  Weight: 89 kg

DRUGS (15)
  1. COENZYME Q10 [Concomitant]
     Active Substance: UBIDECARENONE
     Dosage: 100 MG, DAILY (EVERY DAY)
     Route: 048
     Dates: start: 20121211
  2. ASPIRINE [Concomitant]
     Active Substance: ASPIRIN
     Dosage: 0.5 MG, DAILY
     Route: 048
     Dates: start: 20180417
  3. VITAMIN D3 [Concomitant]
     Active Substance: CHOLECALCIFEROL
     Dosage: 5000 IU, DAILY (EVERY DAY)
     Route: 048
     Dates: start: 20121211
  4. KLONOPIN [Concomitant]
     Active Substance: CLONAZEPAM
     Dosage: UNK, AS NEEDED (0.5?1 TABLET BY ORAL ROUTE TWICE A DAY)
     Route: 048
     Dates: start: 20180815
  5. NORVASC [Suspect]
     Active Substance: AMLODIPINE BESYLATE
     Indication: HYPERTENSION
     Dosage: 2.5 MG, 2X/DAY (CUTTING 5 MG IN HALF TO TAKE 2.5 MG IN THE MORNING AND 2.5 MG AT NIGHT)
  6. NORVASC [Suspect]
     Active Substance: AMLODIPINE BESYLATE
     Dosage: 2.5 MG, 2X/DAY, (ONE IN MORNING AND ONE AT NIGHT)
     Dates: start: 201804, end: 201805
  7. ATENOLOL. [Concomitant]
     Active Substance: ATENOLOL
     Indication: HYPERTENSION
     Dosage: 25 MG, 2X/DAY
  8. NORVASC [Suspect]
     Active Substance: AMLODIPINE BESYLATE
     Dosage: 2.5 MG, DAILY
  9. RAMIPRIL. [Concomitant]
     Active Substance: RAMIPRIL
     Indication: HYPERTENSION
     Dosage: 10 MG, 2X/DAY
     Route: 048
     Dates: start: 20180614
  10. ATENOLOL. [Concomitant]
     Active Substance: ATENOLOL
     Dosage: 25 MG, UNK (EVERY 2 DAYS)
     Route: 048
     Dates: start: 20180815
  11. KLONOPIN [Concomitant]
     Active Substance: CLONAZEPAM
     Indication: ANXIETY
     Dosage: UNK, AS NEEDED (1.5?2 TABLET BY ORAL ROUTE EVERY DAY PRN)
     Route: 048
  12. NORVASC [Suspect]
     Active Substance: AMLODIPINE BESYLATE
     Dosage: 0.5 MG, 2X/DAY
     Route: 048
     Dates: start: 20180525
  13. CLONAZEPAM. [Concomitant]
     Active Substance: CLONAZEPAM
     Indication: HYPERTENSION
     Dosage: 0.25 MG, 2X/DAY (0.5 MG CUTS IN HALF AND TAKES 0.25 MG TWICE A DAY)
  14. PROBIOTICS [Concomitant]
     Active Substance: PROBIOTICS NOS
     Dosage: UNK, (TAKE 1 BY ORAL ROUTE)
     Route: 048
     Dates: start: 20150609
  15. HYDROCODONE/ACETAMINOPHEN [Concomitant]
     Active Substance: ACETAMINOPHEN\HYDROCODONE
     Indication: PAIN
     Dosage: 1 DF, AS NEEDED AS NEEDED [HYDROCODONE BITARTRATE: 5, PARACETAMOL: 325] (EVERY 8 HOURS)
     Route: 048
     Dates: start: 20171103

REACTIONS (4)
  - Palpitations [Recovered/Resolved]
  - Product use issue [Not Recovered/Not Resolved]
  - Extrasystoles [Recovered/Resolved]
  - Heart rate irregular [Recovered/Resolved]

NARRATIVE: CASE EVENT DATE: 201804
